FAERS Safety Report 9434665 (Version 3)
Quarter: 2013Q4

REPORT INFORMATION
  Report Type: Spontaneous
  Country: US (occurrence: US)
  Receive Date: 20130801
  Receipt Date: 20131107
  Transmission Date: 20140711
  Serious: Yes (Other)
  Sender: FDA-Public Use
  Company Number: US-NOVOPROD-384062

PATIENT
  Age: 12 Year
  Sex: Male
  Weight: 39.9 kg

DRUGS (7)
  1. NORDITROPIN FLEXPRO 6.7 MG/ML [Suspect]
     Indication: GROWTH HORMONE DEFICIENCY
     Dosage: 1.5 MG QD
     Route: 058
     Dates: start: 20130418, end: 20130717
  2. CORTEF                             /00028601/ [Concomitant]
     Indication: ADRENAL INSUFFICIENCY
     Dosage: 5 MG, BID (IN THE AM AND AT 8PM)
     Route: 048
  3. LEVOTHYROXINE [Concomitant]
     Indication: HYPOTHYROIDISM
     Dosage: 25 UG, QD
     Route: 048
     Dates: start: 201211, end: 201307
  4. LEVOTHYROXINE [Concomitant]
     Dosage: 37.5 UG, QD
     Route: 048
     Dates: start: 20130730
  5. LANSOPRAZOLE [Concomitant]
     Indication: PRODUCT USED FOR UNKNOWN INDICATION
     Dosage: 15 MG, UNK
     Route: 048
  6. SOLU-CORTEF [Concomitant]
     Indication: PRODUCT USED FOR UNKNOWN INDICATION
     Dosage: 2 ML ONCE FOR 1 DOSE
     Route: 030
  7. ZOFRAN                             /00955301/ [Concomitant]
     Indication: NAUSEA
     Dosage: 8 MG, TID AS NEEDED

REACTIONS (1)
  - Medulloblastoma recurrent [Not Recovered/Not Resolved]
